FAERS Safety Report 8966140 (Version 1)
Quarter: 2012Q4

REPORT INFORMATION
  Report Type: Report from Study
  Country: CA (occurrence: CA)
  Receive Date: 20121214
  Receipt Date: 20121214
  Transmission Date: 20130627
  Serious: Yes (Other)
  Sender: FDA-Public Use
  Company Number: CA-ABBOTT-12P-028-1002576-00

PATIENT
  Sex: Female

DRUGS (2)
  1. HUMIRA [Suspect]
     Indication: CROHN^S DISEASE
     Route: 058
     Dates: start: 20090720, end: 2011
  2. HUMIRA [Suspect]
     Route: 058
     Dates: start: 20111012, end: 20120201

REACTIONS (3)
  - Subileus [Unknown]
  - Abscess intestinal [Unknown]
  - Therapeutic response decreased [Unknown]
